FAERS Safety Report 20385705 (Version 2)
Quarter: 2022Q2

REPORT INFORMATION
  Report Type: Report from Study
  Country: BR (occurrence: BR)
  Receive Date: 20220127
  Receipt Date: 20220527
  Transmission Date: 20220721
  Serious: Yes (Other)
  Sender: FDA-Public Use
  Company Number: BR-NOVARTISPH-PHHY2018BR031283

PATIENT
  Age: 49 Year
  Sex: Female
  Weight: 96 kg

DRUGS (5)
  1. COSENTYX [Suspect]
     Active Substance: SECUKINUMAB
     Indication: Psoriatic arthropathy
     Dosage: 2 DOSAGE FORM, QMO (300 MG)
     Route: 058
     Dates: start: 2017
  2. COSENTYX [Suspect]
     Active Substance: SECUKINUMAB
     Dosage: 2 DOSAGE FORM, QMO
     Route: 058
     Dates: start: 20180118
  3. COSENTYX [Suspect]
     Active Substance: SECUKINUMAB
     Dosage: UNK
     Route: 065
     Dates: start: 20190902
  4. COSENTYX [Suspect]
     Active Substance: SECUKINUMAB
     Dosage: UNK
     Route: 065
     Dates: start: 20200103
  5. IBUPROFEN [Concomitant]
     Active Substance: IBUPROFEN
     Indication: Product used for unknown indication
     Dosage: 600 MG, FREQUENCY (FOR 5DAYS)
     Route: 065

REACTIONS (15)
  - Faecaloma [Unknown]
  - Arthralgia [Not Recovered/Not Resolved]
  - Movement disorder [Unknown]
  - Pain in extremity [Recovered/Resolved]
  - Decreased immune responsiveness [Unknown]
  - Influenza [Recovered/Resolved]
  - Rhinitis allergic [Recovered/Resolved]
  - Hypertension [Not Recovered/Not Resolved]
  - Weight increased [Not Recovered/Not Resolved]
  - Constipation [Not Recovered/Not Resolved]
  - Swelling [Not Recovered/Not Resolved]
  - Nasopharyngitis [Recovered/Resolved]
  - Sinusitis [Recovered/Resolved]
  - Sinusitis [Recovering/Resolving]
  - Pharyngitis [Recovered/Resolved]

NARRATIVE: CASE EVENT DATE: 20190801
